FAERS Safety Report 4995836-2 (Version None)
Quarter: 2006Q2

REPORT INFORMATION
  Report Type: 
  Country: None (occurrence: None)
  Receive Date: 20060504
  Receipt Date: 20060222
  Transmission Date: 20061013
  Serious: No
  Sender: FDA-Public Use
  Company Number: B0411654A

PATIENT
  Age: 49 Year
  Sex: Male
  Weight: 57.2893 kg

DRUGS (9)
  1. CEFAZOLIN [Suspect]
     Indication: PROPHYLAXIS
     Dosage: 2 GRAM (S) AS REQUIRED INTRAVENOUS
     Route: 042
     Dates: start: 20010701
  2. CEFOTIAM HYDROCHLORIDE [Suspect]
     Dates: start: 20010701
  3. CEFOZOPRAN HYDROCHLORIDE (CEFOZOPRAN HYDROCHLORIDE) [Suspect]
     Dates: start: 20010723
  4. LEVOFLOXACIN [Concomitant]
  5. MINOCYCLINE HYDROCHLORIDE [Concomitant]
  6. BISOPROLOL FUMARATE [Concomitant]
  7. APRINDINE HYDROCHLORIDE [Concomitant]
  8. WARFARIN POTASSIUM [Concomitant]
  9. CALCIUM CARBONATE [Concomitant]

REACTIONS (5)
  - INFLAMMATION [None]
  - LYMPHOCYTE STIMULATION TEST POSITIVE [None]
  - POST PROCEDURAL COMPLICATION [None]
  - PYREXIA [None]
  - THERAPY NON-RESPONDER [None]
